FAERS Safety Report 11113687 (Version 6)
Quarter: 2015Q4

REPORT INFORMATION
  Report Type: Report from Study
  Country: US (occurrence: US)
  Receive Date: 20150514
  Receipt Date: 20151008
  Transmission Date: 20160304
  Serious: Yes (Hospitalization, Other)
  Sender: FDA-Public Use
  Company Number: US-GILEAD-2015-0153325

PATIENT
  Age: 68 Year
  Sex: Female

DRUGS (7)
  1. AMBRISENTAN [Suspect]
     Active Substance: AMBRISENTAN
     Indication: PRODUCT USED FOR UNKNOWN INDICATION
     Dosage: 10 MG, QD
     Route: 065
     Dates: start: 20150120
  2. REVATIO [Concomitant]
     Active Substance: SILDENAFIL CITRATE
  3. RANEXA [Suspect]
     Active Substance: RANOLAZINE
     Indication: PRODUCT USED FOR UNKNOWN INDICATION
     Route: 065
  4. VELETRI [Suspect]
     Active Substance: EPOPROSTENOL
     Indication: PRODUCT USED FOR UNKNOWN INDICATION
     Route: 065
  5. WARFARIN [Concomitant]
     Active Substance: WARFARIN
  6. FLOLAN [Concomitant]
     Active Substance: EPOPROSTENOL SODIUM
  7. ADCIRCA [Concomitant]
     Active Substance: TADALAFIL

REACTIONS (7)
  - Blood magnesium decreased [Unknown]
  - Central venous catheterisation [Unknown]
  - Abdominal pain upper [Unknown]
  - Headache [Unknown]
  - Chest pain [Unknown]
  - Pain in jaw [Unknown]
  - Pulmonary arterial hypertension [Unknown]
